FAERS Safety Report 7283605-2 (Version None)
Quarter: 2011Q1

REPORT INFORMATION
  Report Type: 
  Country: None (occurrence: None)
  Receive Date: 20110209
  Receipt Date: 20110201
  Transmission Date: 20110831
  Serious: Yes (Death, Life-Threatening)
  Sender: FDA-Public Use
  Company Number: B0683410A

PATIENT
  Sex: Female
  Weight: 61 kg

DRUGS (58)
  1. METHOTREXATE [Concomitant]
     Indication: IMMUNOSUPPRESSION
     Dosage: 25MG PER DAY
     Route: 065
     Dates: start: 20080203, end: 20080203
  2. LOPEMIN [Concomitant]
     Dosage: 2MG PER DAY
     Route: 048
     Dates: start: 20080301, end: 20080313
  3. NEOLAMIN [Concomitant]
     Dosage: 1IUAX PER DAY
     Route: 042
     Dates: start: 20080201, end: 20080314
  4. MODACIN [Concomitant]
     Dosage: 2G PER DAY
     Route: 042
     Dates: start: 20080205, end: 20080213
  5. ZANTAC [Concomitant]
     Dosage: 100MG PER DAY
     Route: 042
     Dates: start: 20080129, end: 20080314
  6. SEPAMIT [Concomitant]
     Dosage: 15MG PER DAY
     Route: 048
     Dates: start: 20080129, end: 20080228
  7. ANTHROBIN P [Concomitant]
     Dosage: 1.5IU3 PER DAY
     Route: 042
     Dates: start: 20080131, end: 20080313
  8. POTASSIUM CHLORIDE [Concomitant]
     Dosage: 10ML PER DAY
     Route: 042
     Dates: start: 20080201, end: 20080314
  9. ATARAX [Concomitant]
     Dosage: 25MG PER DAY
     Route: 042
     Dates: start: 20080201, end: 20080221
  10. MEROPENEM [Concomitant]
     Dosage: 2500MG PER DAY
     Route: 042
     Dates: start: 20080214, end: 20080314
  11. ALBUMINAR [Concomitant]
     Dosage: 250ML PER DAY
     Route: 042
     Dates: start: 20080302, end: 20080302
  12. CONCLYTE-PK [Concomitant]
     Dosage: 40ML PER DAY
     Route: 042
     Dates: start: 20080311, end: 20080314
  13. BAKTAR [Concomitant]
     Dosage: 2IUAX PER DAY
     Route: 048
     Dates: start: 20080131, end: 20080309
  14. SOLITA-T [Concomitant]
     Dosage: 2000ML PER DAY
     Route: 042
     Dates: start: 20080129, end: 20080313
  15. CONCLYTE-MG [Concomitant]
     Dosage: 14ML PER DAY
     Route: 042
     Dates: start: 20080206, end: 20080303
  16. ALBUMIN (HUMAN) [Concomitant]
     Dosage: 50ML PER DAY
     Route: 042
     Dates: start: 20080220, end: 20080314
  17. NOVOLIN R [Concomitant]
     Dosage: .16IUAX PER DAY
     Route: 042
     Dates: start: 20080304, end: 20080314
  18. GAMMAGARD [Concomitant]
     Dosage: 7.5G PER DAY
     Route: 042
     Dates: start: 20080123, end: 20080313
  19. METHOTREXATE [Concomitant]
     Dosage: 11MG PER DAY
     Route: 065
     Dates: start: 20080208, end: 20080208
  20. HEAVY MAGNESIUM OXIDE [Concomitant]
     Dosage: 2.01G PER DAY
     Route: 048
     Dates: start: 20080201, end: 20080207
  21. HYALEIN [Concomitant]
     Dosage: 10ML PER DAY
     Route: 031
     Dates: start: 20080224, end: 20080306
  22. HACHIAZULE [Concomitant]
     Dosage: 8G PER DAY
     Route: 002
     Dates: start: 20080225, end: 20080309
  23. ALMETA [Concomitant]
     Dosage: 15G PER DAY
     Route: 061
     Dates: start: 20080301, end: 20080301
  24. ALLOID G [Concomitant]
     Dosage: 60ML PER DAY
     Route: 048
     Dates: start: 20080313, end: 20080319
  25. GAMMAGARD [Concomitant]
     Dosage: 7.5G PER DAY
     Route: 042
     Dates: start: 20080123, end: 20080313
  26. SOLITA-T [Concomitant]
     Dosage: 1000ML PER DAY
     Route: 042
     Dates: start: 20080206, end: 20080302
  27. NEO-MINOPHAGEN-C [Concomitant]
     Dosage: 60ML PER DAY
     Route: 042
     Dates: start: 20080219, end: 20080302
  28. VEEN-3G [Concomitant]
     Dosage: 2000ML PER DAY
     Route: 042
     Dates: start: 20080304, end: 20080311
  29. SODIUM CHLORIDE [Concomitant]
     Dosage: 40ML PER DAY
     Route: 042
     Dates: start: 20080312, end: 20080314
  30. ALKERAN [Suspect]
     Indication: ALLOGENIC BONE MARROW TRANSPLANTATION THERAPY
     Dosage: 70MG PER DAY
     Route: 042
     Dates: start: 20080128, end: 20080129
  31. AZUNOL [Concomitant]
     Dosage: 20G PER DAY
     Route: 061
     Dates: start: 20080215, end: 20080225
  32. ULCERLMIN [Concomitant]
     Dosage: 3G PER DAY
     Route: 048
     Dates: start: 20080224, end: 20080313
  33. ECOLICIN [Concomitant]
     Dosage: 5.1ML PER DAY
     Route: 031
     Dates: start: 20080224, end: 20080312
  34. ELEMENMIC [Concomitant]
     Dosage: 2ML PER DAY
     Route: 042
     Dates: start: 20080201, end: 20080314
  35. HAPTOGLOBIN [Concomitant]
     Dosage: 2IU3 PER DAY
     Route: 042
     Dates: start: 20080201, end: 20080201
  36. SOLU-CORTEF [Concomitant]
     Dosage: 300MG PER DAY
     Route: 042
     Dates: start: 20080201, end: 20080201
  37. SODIUM CHLORIDE [Concomitant]
     Dosage: 40ML PER DAY
     Route: 042
     Dates: start: 20080206, end: 20080311
  38. HANP [Concomitant]
     Dosage: 4.5MG PER DAY
     Route: 042
     Dates: start: 20080222, end: 20080301
  39. FLUDARA [Suspect]
     Indication: ALLOGENIC BONE MARROW TRANSPLANTATION THERAPY
     Dosage: 25MGM2 PER DAY
     Route: 042
     Dates: start: 20080126, end: 20080130
  40. POLYMYXIN-B-SULFATE [Concomitant]
     Dosage: 3000IU3 PER DAY
     Route: 048
     Dates: start: 20080129, end: 20080228
  41. DEPAS [Concomitant]
     Route: 048
     Dates: start: 20080301, end: 20080305
  42. KYTRIL [Concomitant]
     Dosage: 6MG PER DAY
     Route: 042
     Dates: start: 20080129, end: 20080220
  43. PREDONINE [Concomitant]
     Dosage: 20MG PER DAY
     Route: 042
     Dates: start: 20080129, end: 20080314
  44. ZOVIRAX [Concomitant]
     Dosage: 500MG PER DAY
     Route: 042
     Dates: start: 20080202, end: 20080310
  45. CALCICOL [Concomitant]
     Dosage: 20ML PER DAY
     Route: 042
     Dates: start: 20080305, end: 20080314
  46. XYLOCAINE [Concomitant]
     Dosage: 10ML PER DAY
     Route: 061
     Dates: start: 20080225, end: 20080309
  47. CALONAL [Concomitant]
     Route: 048
     Dates: start: 20080310, end: 20080319
  48. SOLITA-T [Concomitant]
     Dosage: 2000ML PER DAY
     Route: 042
     Dates: start: 20080129, end: 20080312
  49. FUROSEMIDE [Concomitant]
     Dosage: 20MG PER DAY
     Route: 042
     Dates: start: 20080129, end: 20080314
  50. REHABIX-K NO.2 [Concomitant]
     Dosage: 1000ML PER DAY
     Route: 042
     Dates: start: 20080201, end: 20080314
  51. FUNGUARD [Concomitant]
     Dosage: 50MG PER DAY
     Route: 042
     Dates: start: 20080205, end: 20080314
  52. METHOTREXATE [Concomitant]
     Dosage: 25MG PER DAY
     Route: 065
     Dates: start: 20080205, end: 20080205
  53. ASPARA K [Concomitant]
     Dosage: 40ML PER DAY
     Route: 042
     Dates: start: 20080306, end: 20080310
  54. TACROLIMUS [Concomitant]
     Indication: IMMUNOSUPPRESSION
     Dosage: .6MG PER DAY
     Dates: start: 20080131, end: 20080319
  55. PROPETO [Concomitant]
     Dosage: 30G PER DAY
     Route: 061
     Dates: start: 20080223, end: 20080305
  56. URSO 250 [Concomitant]
     Dosage: 100MG PER DAY
     Route: 048
     Dates: start: 20080310, end: 20080316
  57. FRAGMIN [Concomitant]
     Dosage: 4.5ML PER DAY
     Route: 042
     Dates: start: 20080129, end: 20080314
  58. PROTEAMIN [Concomitant]
     Dosage: 100ML PER DAY
     Route: 042
     Dates: start: 20080201, end: 20080314

REACTIONS (6)
  - GRAFT VERSUS HOST DISEASE [None]
  - ARRHYTHMIA [None]
  - FEBRILE NEUTROPENIA [None]
  - HEPATIC VEIN OCCLUSION [None]
  - HYPERGLYCAEMIA [None]
  - CARDIAC FAILURE [None]
